FAERS Safety Report 8758167 (Version 2)
Quarter: 2012Q4

REPORT INFORMATION
  Report Type: 
  Country: US (occurrence: US)
  Receive Date: 20120828
  Receipt Date: 20120917
  Transmission Date: 20130627
  Serious: Yes (Other)
  Sender: FDA-Public Use
  Company Number: CHPA2012US018522

PATIENT
  Age: 2 Year
  Sex: Female

DRUGS (2)
  1. TRIAMINIC FEVER REDUCER PAIN RELIEVER [Suspect]
     Indication: EAR PAIN
     Dosage: Unk, ONCE
     Route: 048
     Dates: start: 20120820, end: 20120820
  2. TRIAMINIC FEVER REDUCER PAIN RELIEVER [Suspect]
     Dosage: 1 TSP, PRN
     Route: 048
     Dates: start: 201206

REACTIONS (4)
  - Ear infection [Recovered/Resolved]
  - Off label use [Unknown]
  - Accidental exposure to product by child [Unknown]
  - Expired drug administered [Unknown]
